FAERS Safety Report 6822073-9 (Version None)
Quarter: 2010Q3

REPORT INFORMATION
  Report Type: 
  Country: None (occurrence: None)
  Receive Date: 20100706
  Receipt Date: 20100706
  Transmission Date: 20110219
  Serious: No
  Sender: FDA-Public Use
  Company Number: None

PATIENT
  Age: 41 Year
  Sex: Male
  Weight: 94 kg

DRUGS (1)
  1. GADOTERIDOL [Suspect]
     Indication: NUCLEAR MAGNETIC RESONANCE IMAGING
     Dosage: 17 ML ONCE IV
     Route: 042
     Dates: start: 20100402, end: 20100402

REACTIONS (2)
  - ANAPHYLACTIC REACTION [None]
  - CONTRAST MEDIA REACTION [None]
